FAERS Safety Report 8786119 (Version 1)
Quarter: 2012Q4

REPORT INFORMATION
  Report Type: 
  Country: NL (occurrence: NL)
  Receive Date: 20120914
  Receipt Date: 20120914
  Transmission Date: 20130627
  Serious: Yes (Hospitalization)
  Sender: FDA-Public Use
  Company Number: PHHY2012NL079328

PATIENT
  Age: 33 None
  Sex: Male

DRUGS (3)
  1. LEPONEX [Suspect]
     Dosage: 500 mg, (once daily)
     Route: 048
     Dates: start: 2001
  2. LORAZEPAM [Concomitant]
     Dosage: 1 mg, (four times daily)
  3. DEVARON [Concomitant]
     Dosage: 1 DF, (one tablet once daily)

REACTIONS (3)
  - Loss of consciousness [Recovered/Resolved]
  - Blood creatine phosphokinase increased [Not Recovered/Not Resolved]
  - Tachycardia [Recovering/Resolving]
